FAERS Safety Report 23326959 (Version 1)
Quarter: 2023Q4

REPORT INFORMATION
  Report Type: Spontaneous
  Country: IN (occurrence: IN)
  Receive Date: 20231221
  Receipt Date: 20231221
  Transmission Date: 20240110
  Serious: Yes (Other)
  Sender: FDA-Public Use
  Company Number: IN-PFIZER INC-PV202300147149

PATIENT
  Age: 58 Year
  Sex: Male

DRUGS (4)
  1. DACOMITINIB [Suspect]
     Active Substance: DACOMITINIB
     Indication: Non-small cell lung cancer
     Dosage: 30 MG, 1X/DAY
     Route: 048
     Dates: start: 20221104
  2. LEVERA [LEVETIRACETAM] [Concomitant]
     Dosage: 500 MG, 2X/DAY
     Route: 048
  3. CALCIUM\CHOLECALCIFEROL [Concomitant]
     Active Substance: CALCIUM\CHOLECALCIFEROL
     Dosage: 500 MG, 2X/DAY
     Route: 048
  4. LUMIA 60K [Concomitant]
     Dosage: WEEKLY ONCE X 8 WEEKS + MONTHLY ONCE X 6 MONTHS

REACTIONS (8)
  - Malignant pleural effusion [Unknown]
  - Headache [Unknown]
  - Neoplasm progression [Unknown]
  - Back pain [Unknown]
  - Spinal pain [Unknown]
  - Body mass index increased [Unknown]
  - Weight increased [Unknown]
  - Cough [Unknown]

NARRATIVE: CASE EVENT DATE: 20231001
